FAERS Safety Report 24527090 (Version 1)
Quarter: 2024Q4

REPORT INFORMATION
  Report Type: Report from Study
  Country: DE (occurrence: DE)
  Receive Date: 20241021
  Receipt Date: 20241021
  Transmission Date: 20250115
  Serious: Yes (Other)
  Sender: ACCORD
  Company Number: DE-EMA-DD-20181011-nsinghevhp-111036

PATIENT
  Age: 5 Year
  Sex: Female

DRUGS (15)
  1. MYCOPHENOLATE MOFETIL [Suspect]
     Active Substance: MYCOPHENOLATE MOFETIL
     Indication: Stem cell transplant
     Dosage: 15 MG/KG,TID FROM DAY +5 TO DAY +35
  2. ALEMTUZUMAB [Suspect]
     Active Substance: ALEMTUZUMAB
     Indication: Immunosuppression
     Dosage: .2 MG/KG DAILY; 0.2 MILLIGRAM/KILOGRAM, ONCE A DAY, ON DAYS -9 AND -8 OF THE HSCT
  3. CYCLOPHOSPHAMIDE [Suspect]
     Active Substance: CYCLOPHOSPHAMIDE
     Indication: Prophylaxis against graft versus host disease
  4. FLUDARABINE [Suspect]
     Active Substance: FLUDARABINE PHOSPHATE
     Indication: Bone marrow conditioning regimen
     Dosage: 30 MG/M2 DAILY; 5 X 30 MG/M 2 /DAY (DAYS -7 TO -3)OF THE HSCT
  5. TREOSULFAN [Suspect]
     Active Substance: TREOSULFAN
     Indication: Sickle cell disease
     Dosage: 3 X 14 G/M 2 /DAY (DAYS -7 TO -5) OF THE HSCT
  6. TACROLIMUS [Suspect]
     Active Substance: TACROLIMUS
     Indication: Bone marrow conditioning regimen
     Dosage: (PLASMA TROUGH LEVELS: 5-15 NG/ML) FROM DAY +5 UNTIL DAY +100 OF THE HSCT WITH CONSECUTIVE TAPERING)
  7. THIOTEPA [Suspect]
     Active Substance: THIOTEPA
     Indication: Sickle cell disease
     Dosage: 10 MG/KG DAILY; 2 X 5 MG/KG ON DAY -4 OF THE HSCT
  8. HYDROXYUREA [Concomitant]
     Active Substance: HYDROXYUREA
     Indication: Sickle cell disease
  9. LEVETIRACETAM [Concomitant]
     Active Substance: LEVETIRACETAM
     Indication: Prophylaxis
  10. TACROLIMUS [Suspect]
     Active Substance: TACROLIMUS
     Indication: Product used for unknown indication
     Dosage: 14.5 MG/KG/DAY ON DAYS -3 AND -2 UNK
  11. TACROLIMUS [Suspect]
     Active Substance: TACROLIMUS
     Indication: Prophylaxis against graft versus host disease
     Dosage: FROM DAY +5 UNTIL DAY +100 AIMING AT PLASMA TROUGH LEVELS OF 5-15 NG/ML WITH CONSECUTIVE TAPERING
  12. TREOSULFAN [Suspect]
     Active Substance: TREOSULFAN
     Indication: Bone marrow conditioning regimen
     Dosage: ON DAYS -7 TO -5 14G/M2
  13. TACROLIMUS [Suspect]
     Active Substance: TACROLIMUS
     Indication: Stem cell transplant
     Dosage: UNK FROM DAY +5 UNTIL DAY +100
  14. CYCLOPHOSPHAMIDE [Suspect]
     Active Substance: CYCLOPHOSPHAMIDE
     Indication: Stem cell transplant
     Dosage: 2 X 50 MG/KG/DAY ON DAYS +3 AND +4
  15. CYCLOPHOSPHAMIDE [Suspect]
     Active Substance: CYCLOPHOSPHAMIDE
     Indication: Bone marrow conditioning regimen
     Dosage: 14.5 MG/KG DAILY; 2 X 14.5 MG/KG/DAY (DAYS -3 TO -2) OF THE HSCT

REACTIONS (4)
  - Cytomegalovirus infection reactivation [Recovered/Resolved]
  - Graft versus host disease in skin [Unknown]
  - Mucosal inflammation [Unknown]
  - Varicella zoster virus infection [Unknown]
